FAERS Safety Report 13252331 (Version 6)
Quarter: 2017Q2

REPORT INFORMATION
  Report Type: Spontaneous
  Country: FR (occurrence: FR)
  Receive Date: 20170220
  Receipt Date: 20170510
  Transmission Date: 20170830
  Serious: Yes (Hospitalization, Other)
  Sender: FDA-Public Use
  Company Number: FR-MYLANLABS-2016M1041000

PATIENT

DRUGS (72)
  1. LEPONEX [Suspect]
     Active Substance: CLOZAPINE
     Indication: PSYCHOTIC DISORDER
     Dosage: 0.5 DF, QD
     Route: 048
     Dates: start: 20120702, end: 20120704
  2. LEPONEX [Suspect]
     Active Substance: CLOZAPINE
     Dosage: 2 DF, QD
     Route: 048
     Dates: start: 20120706, end: 20120709
  3. LEPONEX [Suspect]
     Active Substance: CLOZAPINE
     Dosage: 2 DF, QD
     Route: 048
     Dates: start: 20120713, end: 20120715
  4. LEPONEX [Suspect]
     Active Substance: CLOZAPINE
     Dosage: 7 DF, QD
     Route: 048
     Dates: start: 20120813, end: 20120821
  5. LEPONEX [Suspect]
     Active Substance: CLOZAPINE
     Dosage: 9 DF, QD
     Route: 048
     Dates: start: 20120821, end: 20121029
  6. LEPONEX [Suspect]
     Active Substance: CLOZAPINE
     Dosage: 9 DF, QD
     Route: 048
     Dates: start: 20131013
  7. SOLIAN [Concomitant]
     Active Substance: AMISULPRIDE
     Dosage: 400 MG, BID
     Dates: start: 20140116
  8. LYSANXIA [Concomitant]
     Active Substance: PRAZEPAM
     Indication: PRODUCT USED FOR UNKNOWN INDICATION
     Dosage: 5 DF, QD
     Dates: start: 20121016, end: 20121129
  9. LYSANXIA [Concomitant]
     Active Substance: PRAZEPAM
     Dosage: 10 MG, BID
     Dates: start: 20130124, end: 20131219
  10. LYSANXIA [Concomitant]
     Active Substance: PRAZEPAM
     Dosage: 10 MG, TID
     Dates: start: 20130829
  11. LYSANXIA [Concomitant]
     Active Substance: PRAZEPAM
     Dosage: 10 MG, TID
     Dates: start: 20131128
  12. RISPERDAL [Concomitant]
     Active Substance: RISPERIDONE
     Indication: PRODUCT USED FOR UNKNOWN INDICATION
     Dosage: 4 ML, UNK
     Dates: start: 20120805, end: 20120810
  13. AUGMENTIN [Concomitant]
     Active Substance: AMOXICILLIN\CLAVULANATE POTASSIUM
     Indication: PRODUCT USED FOR UNKNOWN INDICATION
     Dosage: 1 G, TID
     Dates: start: 20120723, end: 20120801
  14. LEPONEX [Suspect]
     Active Substance: CLOZAPINE
     Dosage: 5 DF, QD
     Route: 048
     Dates: start: 20120731, end: 20120813
  15. LEPONEX [Suspect]
     Active Substance: CLOZAPINE
     Dosage: 9 DF, QD
     Dates: start: 20121129
  16. LEPONEX [Suspect]
     Active Substance: CLOZAPINE
     Dosage: 9 DF, QD
     Route: 048
     Dates: start: 20130702
  17. SOLIAN [Concomitant]
     Active Substance: AMISULPRIDE
     Dosage: 400 MG, BID
     Dates: start: 20130604
  18. SOLIAN [Concomitant]
     Active Substance: AMISULPRIDE
     Dosage: 400 MG, BID
     Dates: start: 20131128
  19. LYSANXIA [Concomitant]
     Active Substance: PRAZEPAM
     Dosage: 10 MG, TID
     Dates: start: 20131013
  20. NICOBION [Concomitant]
     Active Substance: NIACINAMIDE
     Indication: PRODUCT USED FOR UNKNOWN INDICATION
     Dosage: 1 DF, UNK
     Dates: start: 20130604
  21. KARDEGIC [Concomitant]
     Active Substance: ASPIRIN LYSINE
     Indication: PRODUCT USED FOR UNKNOWN INDICATION
     Dosage: 75 MG, UNK
     Dates: start: 20120723, end: 20120903
  22. ALIMEMAZINE [Concomitant]
     Active Substance: TRIMEPRAZINE
     Indication: PRODUCT USED FOR UNKNOWN INDICATION
  23. LEPONEX [Suspect]
     Active Substance: CLOZAPINE
     Dosage: 1 DF, QD
     Route: 048
     Dates: start: 20120704, end: 20120706
  24. LEPONEX [Suspect]
     Active Substance: CLOZAPINE
     Dosage: 4 DF, QD
     Route: 048
     Dates: start: 20120723, end: 20120731
  25. LEPONEX [Suspect]
     Active Substance: CLOZAPINE
     Dosage: 9 DF, QD
     Route: 048
     Dates: start: 20140116
  26. LEPONEX [Suspect]
     Active Substance: CLOZAPINE
     Dosage: 4 DF, QD
     Dates: start: 20140309
  27. LYSANXIA [Concomitant]
     Active Substance: PRAZEPAM
     Dosage: 10 MG, TID
     Dates: start: 20121129, end: 20130124
  28. LYSANXIA [Concomitant]
     Active Substance: PRAZEPAM
     Dosage: 3 DF, QD
     Dates: start: 20131219, end: 20140116
  29. LYSANXIA [Concomitant]
     Active Substance: PRAZEPAM
     Dosage: 10 MG, TID
     Dates: start: 20130702
  30. LYSANXIA [Concomitant]
     Active Substance: PRAZEPAM
     Dosage: 10 MG, TID
     Dates: start: 20130801
  31. LYSANXIA [Concomitant]
     Active Substance: PRAZEPAM
     Dosage: 10 MG, TID
     Dates: start: 20160514
  32. THERALENE [Concomitant]
     Active Substance: TRIMEPRAZINE
     Indication: PRODUCT USED FOR UNKNOWN INDICATION
     Dosage: 1 DF, HS
     Dates: end: 20121228
  33. LEPONEX [Suspect]
     Active Substance: CLOZAPINE
     Dosage: 9 DF, QD
     Route: 048
     Dates: start: 20130604
  34. LEPONEX [Suspect]
     Active Substance: CLOZAPINE
     Dosage: 9 DF, QD
     Route: 048
     Dates: start: 20130926
  35. SOLIAN [Concomitant]
     Active Substance: AMISULPRIDE
     Dosage: 400 MG, BID
     Dates: start: 20121105
  36. SOLIAN [Concomitant]
     Active Substance: AMISULPRIDE
     Dosage: 400 MG, BID
     Dates: start: 20130702
  37. LYSANXIA [Concomitant]
     Active Substance: PRAZEPAM
     Dosage: 4 DF, UNK
     Route: 065
     Dates: start: 20140306
  38. THERALENE [Concomitant]
     Active Substance: TRIMEPRAZINE
     Dosage: 1 DF, UNK
     Dates: start: 20121029
  39. SEROPRAM [Concomitant]
     Active Substance: CITALOPRAM HYDROBROMIDE
     Dosage: 1.5 DF, UNK
     Dates: start: 20130901, end: 20130907
  40. ATENOLOL. [Concomitant]
     Active Substance: ATENOLOL
     Indication: PRODUCT USED FOR UNKNOWN INDICATION
     Dosage: 50 MG, QD
     Dates: start: 20120727, end: 20120811
  41. LEPONEX [Suspect]
     Active Substance: CLOZAPINE
     Dosage: 1.5 DF, QD
     Route: 048
     Dates: start: 20120711, end: 20120713
  42. LEPONEX [Suspect]
     Active Substance: CLOZAPINE
     Dosage: 3 DF, QD
     Route: 048
     Dates: start: 20140310, end: 20140311
  43. DEROXAT [Concomitant]
     Active Substance: PAROXETINE HYDROCHLORIDE
     Indication: PRODUCT USED FOR UNKNOWN INDICATION
     Dosage: 1 DF, UNK
     Dates: start: 20120604, end: 20130627
  44. SEROPRAM [Concomitant]
     Active Substance: CITALOPRAM HYDROBROMIDE
     Indication: PRODUCT USED FOR UNKNOWN INDICATION
     Dosage: 1 UNK, UNK
     Dates: start: 20130702, end: 20130901
  45. LEPONEX [Suspect]
     Active Substance: CLOZAPINE
     Dosage: 3 DF, PM
     Route: 048
     Dates: start: 20120715, end: 20120723
  46. LEPONEX [Suspect]
     Active Substance: CLOZAPINE
     Dosage: 9 DF, QD
     Route: 048
     Dates: start: 20121105
  47. LEPONEX [Suspect]
     Active Substance: CLOZAPINE
     Dosage: 9 DF, QD
     Dates: start: 20131128
  48. LEPONEX [Suspect]
     Active Substance: CLOZAPINE
     Dosage: 2 DF, QD
     Route: 048
     Dates: start: 20140312, end: 20140313
  49. SOLIAN [Concomitant]
     Active Substance: AMISULPRIDE
     Indication: PRODUCT USED FOR UNKNOWN INDICATION
     Dosage: 2 DF, UNK
     Dates: start: 20121016, end: 20140306
  50. SOLIAN [Concomitant]
     Active Substance: AMISULPRIDE
     Dosage: UNK UNK, TID
     Dates: start: 20140306
  51. SOLIAN [Concomitant]
     Active Substance: AMISULPRIDE
     Dosage: 400 MG, BID
     Dates: start: 20130618
  52. LYSANXIA [Concomitant]
     Active Substance: PRAZEPAM
     Dosage: 10 MG, TID
     Dates: start: 20130618
  53. LYSANXIA [Concomitant]
     Active Substance: PRAZEPAM
     Dosage: 10 MG, TID
     Dates: start: 20131219
  54. LYSANXIA [Concomitant]
     Active Substance: PRAZEPAM
     Dosage: 10 MG, TID
     Dates: start: 20160507
  55. LEPONEX [Suspect]
     Active Substance: CLOZAPINE
     Dosage: 1 DF, QD
     Dates: start: 20120709, end: 20120711
  56. LEPONEX [Suspect]
     Active Substance: CLOZAPINE
     Dosage: 9 DF, QD
     Route: 048
     Dates: start: 20130618
  57. LEPONEX [Suspect]
     Active Substance: CLOZAPINE
     Dosage: 9 DF, QD
     Route: 048
     Dates: start: 20130829
  58. LEPONEX [Suspect]
     Active Substance: CLOZAPINE
     Dosage: 5 DF, QD
     Route: 048
     Dates: start: 20140307, end: 20140308
  59. LEPONEX [Suspect]
     Active Substance: CLOZAPINE
     Dosage: 9 DF, UNK
     Route: 048
     Dates: start: 20151216
  60. SOLIAN [Concomitant]
     Active Substance: AMISULPRIDE
     Dosage: 400 MG, BID
     Dates: start: 20121129
  61. SOLIAN [Concomitant]
     Active Substance: AMISULPRIDE
     Dosage: 400 MG, BID
     Dates: start: 20131013
  62. SOLIAN [Concomitant]
     Active Substance: AMISULPRIDE
     Dosage: 400 MG, BID
     Dates: start: 20131219
  63. PERFALGAN [Concomitant]
     Active Substance: ACETAMINOPHEN
     Indication: PRODUCT USED FOR UNKNOWN INDICATION
     Dosage: 1 G, QID
     Dates: start: 20120721, end: 20120721
  64. LEPONEX [Suspect]
     Active Substance: CLOZAPINE
     Dosage: 8 DF, QD
     Route: 048
     Dates: start: 201208
  65. LEPONEX [Suspect]
     Active Substance: CLOZAPINE
     Dosage: 9 DF, QD
     Dates: start: 20121228, end: 20130425
  66. LEPONEX [Suspect]
     Active Substance: CLOZAPINE
     Dosage: 9 DF, QD
     Route: 048
     Dates: start: 20130801
  67. LEPONEX [Suspect]
     Active Substance: CLOZAPINE
     Dosage: 9 DF, QD
     Route: 048
     Dates: start: 20131219
  68. SOLIAN [Concomitant]
     Active Substance: AMISULPRIDE
     Dosage: 400 MG, BID
     Dates: start: 20130801
  69. SOLIAN [Concomitant]
     Active Substance: AMISULPRIDE
     Dosage: 400 MG, BID
     Dates: start: 20130829
  70. LYSANXIA [Concomitant]
     Active Substance: PRAZEPAM
     Dosage: 10 MG, TID
     Dates: start: 20130604
  71. LYSANXIA [Concomitant]
     Active Substance: PRAZEPAM
     Dosage: 10 MG, TID
     Dates: start: 20140116, end: 20140306
  72. LYSANXIA [Concomitant]
     Active Substance: PRAZEPAM
     Dosage: 10 MG, TID
     Dates: start: 20140116

REACTIONS (62)
  - Electrocardiogram T wave abnormal [Unknown]
  - Weight increased [Unknown]
  - Intervertebral disc protrusion [Unknown]
  - Intervertebral disc space narrowing [Unknown]
  - Mental disorder [Unknown]
  - Neutrophil count increased [Unknown]
  - Platelet count decreased [Unknown]
  - Sleep apnoea syndrome [Unknown]
  - Aggression [Unknown]
  - Ventricular hypokinesia [Unknown]
  - Osteoarthritis [Unknown]
  - Tachycardia [Not Recovered/Not Resolved]
  - Anxiety [Unknown]
  - Pain [Unknown]
  - Splenomegaly [Unknown]
  - Conjunctival hyperaemia [Unknown]
  - Ejection fraction decreased [Unknown]
  - Delirium [Unknown]
  - Mastication disorder [Unknown]
  - General physical health deterioration [Unknown]
  - Dyspnoea [Unknown]
  - Hepatic cyst [Unknown]
  - Gait disturbance [Unknown]
  - Bundle branch block left [Unknown]
  - Antipsychotic drug level above therapeutic [Unknown]
  - Hepatic steatosis [Unknown]
  - Lacrimation increased [Unknown]
  - Hepatomegaly [Unknown]
  - Monocyte count increased [Unknown]
  - Face oedema [Unknown]
  - Chest pain [Not Recovered/Not Resolved]
  - C-reactive protein increased [Unknown]
  - Agitation [Unknown]
  - Mitral valve incompetence [Unknown]
  - Amnesia [Unknown]
  - Left ventricular hypertrophy [Unknown]
  - Confusional state [Unknown]
  - Cardiac disorder [Unknown]
  - Somnolence [Unknown]
  - Drug ineffective [Unknown]
  - Upper respiratory tract infection [Unknown]
  - Lung disorder [Unknown]
  - Exostosis [Unknown]
  - Erectile dysfunction [Unknown]
  - White blood cell count decreased [Unknown]
  - Biliary cyst [Unknown]
  - Hamartoma [Unknown]
  - Aortic dilatation [Unknown]
  - Delusion [Unknown]
  - Malaise [Not Recovered/Not Resolved]
  - Troponin increased [Unknown]
  - Pickwickian syndrome [Unknown]
  - Hypertension [Unknown]
  - Infection [Unknown]
  - Umbilical hernia [Unknown]
  - Toxicity to various agents [Not Recovered/Not Resolved]
  - Concomitant disease aggravated [Unknown]
  - Non-alcoholic steatohepatitis [Not Recovered/Not Resolved]
  - Antipsychotic drug level below therapeutic [Unknown]
  - Memory impairment [Unknown]
  - Pruritus [Unknown]
  - Myelocytosis [Unknown]

NARRATIVE: CASE EVENT DATE: 201207
